FAERS Safety Report 8309319-5 (Version None)
Quarter: 2012Q2

REPORT INFORMATION
  Report Type: 
  Country: None (occurrence: None)
  Receive Date: 20120425
  Receipt Date: 20120420
  Transmission Date: 20120825
  Serious: Yes (Death, Congenital Anomaly)
  Sender: FDA-Public Use
  Company Number: FR-ASTRAZENECA-2012SE25886

PATIENT
  Age: 0 Week

DRUGS (2)
  1. PAROXETINE HYDROCHLORIDE [Concomitant]
     Route: 064
  2. QUETIAPINE FUMARATE [Suspect]
     Route: 064
     Dates: start: 20120105, end: 20120215

REACTIONS (1)
  - FOETAL MALFORMATION [None]
